FAERS Safety Report 12810136 (Version 1)
Quarter: 2016Q4

REPORT INFORMATION
  Report Type: Spontaneous
  Country: US (occurrence: US)
  Receive Date: 20161005
  Receipt Date: 20161005
  Transmission Date: 20170207
  Serious: No
  Sender: FDA-Public Use
  Company Number: US-PFIZER INC-2016298062

PATIENT
  Age: 70 Year
  Sex: Female

DRUGS (1)
  1. SUTENT [Suspect]
     Active Substance: SUNITINIB MALATE
     Indication: ADRENOCORTICAL CARCINOMA
     Dosage: 25 MG, 1X/DAY

REACTIONS (3)
  - Gastric dilatation [Unknown]
  - Product use issue [Unknown]
  - Abdominal distension [Unknown]
